FAERS Safety Report 19003771 (Version 12)
Quarter: 2021Q4

REPORT INFORMATION
  Report Type: Report from Study
  Country: RU (occurrence: None)
  Receive Date: 20210312
  Receipt Date: 20211222
  Transmission Date: 20220303
  Serious: Yes (Hospitalization)
  Sender: FDA-Public Use
  Company Number: RU-EISAI MEDICAL RESEARCH-EC-2021-089376

PATIENT
  Age: 64 Year
  Sex: Male
  Weight: 65 kg

DRUGS (12)
  1. LENVATINIB [Suspect]
     Active Substance: LENVATINIB
     Indication: Non-small cell lung cancer metastatic
     Route: 048
     Dates: start: 20201020, end: 20210304
  2. PEMBROLIZUMAB [Suspect]
     Active Substance: PEMBROLIZUMAB
     Indication: Non-small cell lung cancer metastatic
     Route: 041
     Dates: start: 20201020, end: 20210202
  3. PEMBROLIZUMAB [Suspect]
     Active Substance: PEMBROLIZUMAB
     Route: 041
     Dates: start: 20210225, end: 20210225
  4. PEMETREXED [Suspect]
     Active Substance: PEMETREXED
     Indication: Non-small cell lung cancer metastatic
     Route: 042
     Dates: start: 20201020, end: 20210202
  5. PEMETREXED [Suspect]
     Active Substance: PEMETREXED
     Route: 042
     Dates: start: 20210225, end: 20210225
  6. CARBOPLATIN [Concomitant]
     Active Substance: CARBOPLATIN
     Route: 065
     Dates: start: 20201020, end: 20201222
  7. TRAMADOL HYDROCHLORIDE [Concomitant]
     Active Substance: TRAMADOL HYDROCHLORIDE
     Dates: start: 202007
  8. DEXTROSE [Concomitant]
     Active Substance: DEXTROSE
     Dates: start: 20210304, end: 20210304
  9. ACESOL [Concomitant]
     Dates: start: 20210304, end: 20210304
  10. DEXAMETHASONE [Concomitant]
     Active Substance: DEXAMETHASONE
     Dates: start: 20210304, end: 20210304
  11. GRANULOCYTE COLONY-STIMULATING FACTOR NOS [Concomitant]
     Active Substance: GRANULOCYTE COLONY-STIMULATING FACTOR NOS
     Dates: start: 20210304, end: 20210304
  12. FILGRASTIM [Concomitant]
     Active Substance: FILGRASTIM
     Dates: start: 20210304, end: 20210304

REACTIONS (1)
  - Nephropathy [Not Recovered/Not Resolved]

NARRATIVE: CASE EVENT DATE: 20210304
